FAERS Safety Report 16485578 (Version 1)
Quarter: 2019Q2

REPORT INFORMATION
  Report Type: Spontaneous
  Country: US (occurrence: US)
  Receive Date: 20190627
  Receipt Date: 20190627
  Transmission Date: 20190711
  Serious: No
  Sender: FDA-Public Use
  Company Number: US-009507513-1906USA009253

PATIENT
  Age: 77 Year
  Sex: Male

DRUGS (2)
  1. FINASTERIDE. [Suspect]
     Active Substance: FINASTERIDE
     Indication: ALOPECIA
     Dosage: UNK
     Dates: start: 2016
  2. PROPECIA [Suspect]
     Active Substance: FINASTERIDE
     Indication: ALOPECIA
     Dosage: 1 MILLIGRAM DAILY
     Route: 048
     Dates: start: 2008

REACTIONS (1)
  - Ejaculation failure [Not Recovered/Not Resolved]

NARRATIVE: CASE EVENT DATE: 2008
